FAERS Safety Report 6102627-8 (Version None)
Quarter: 2009Q1

REPORT INFORMATION
  Report Type: 
  Country: None (occurrence: None)
  Receive Date: 20090304
  Receipt Date: 20081022
  Transmission Date: 20090719
  Serious: No
  Sender: FDA-Public Use
  Company Number: A0753040A

PATIENT
  Age: 51 Year
  Sex: Male

DRUGS (7)
  1. REQUIP [Suspect]
     Dosage: 2MG PER DAY
     Route: 048
     Dates: start: 20080101, end: 20081008
  2. CRESTOR [Concomitant]
  3. LASIX [Concomitant]
  4. KLOR-CON [Concomitant]
  5. LEVOTHYROXINE SODIUM [Concomitant]
  6. TOPROL-XL [Concomitant]
  7. ASPIRIN [Concomitant]

REACTIONS (1)
  - DRUG INEFFECTIVE [None]
